FAERS Safety Report 9783089 (Version 2)
Quarter: 2013Q4

REPORT INFORMATION
  Report Type: Spontaneous
  Country: JP (occurrence: JP)
  Receive Date: 20131226
  Receipt Date: 20131226
  Transmission Date: 20140711
  Serious: Yes (Other)
  Sender: FDA-Public Use
  Company Number: PHHY2013JP131965

PATIENT
  Age: 63 Year
  Sex: Female

DRUGS (1)
  1. VOLTAREN SR [Suspect]
     Indication: PAIN
     Dosage: UNK UKN, UNK
     Route: 048
     Dates: start: 20110721

REACTIONS (1)
  - Breast disorder [Unknown]
